FAERS Safety Report 23767708 (Version 1)
Quarter: 2024Q2

REPORT INFORMATION
  Report Type: Spontaneous
  Country: IR (occurrence: IR)
  Receive Date: 20240422
  Receipt Date: 20240422
  Transmission Date: 20240715
  Serious: Yes (Death, Hospitalization, Other)
  Sender: FDA-Public Use
  Company Number: IR-TWI PHARMACEUTICAL, INC-2024SCTW000072

PATIENT

DRUGS (1)
  1. METFORMIN HYDROCHLORIDE [Suspect]
     Active Substance: METFORMIN HYDROCHLORIDE
     Indication: Product used for unknown indication
     Dosage: 20 DOSAGE FORM
     Route: 065

REACTIONS (9)
  - Respiratory distress [Unknown]
  - Depressed level of consciousness [Unknown]
  - Toxicity to various agents [Unknown]
  - Arrhythmia [Unknown]
  - Myocardial infarction [Fatal]
  - Overdose [Unknown]
  - Cold sweat [Unknown]
  - Hyperlactacidaemia [Unknown]
  - Hypoglycaemia [Unknown]
